FAERS Safety Report 7997366-2 (Version None)
Quarter: 2011Q4

REPORT INFORMATION
  Report Type: 
  Country: None (occurrence: None)
  Receive Date: 20111221
  Receipt Date: 20111216
  Transmission Date: 20120403
  Serious: Yes (Hospitalization, Other)
  Sender: FDA-Public Use
  Company Number: US-AMGEN-USASP2011033535

PATIENT
  Age: 73 Year
  Sex: Male

DRUGS (1)
  1. ENBREL [Suspect]
     Indication: PSORIASIS
     Dosage: 50 MG, UNK
     Dates: start: 20040802, end: 20110602

REACTIONS (4)
  - PROTHROMBIN TIME PROLONGED [None]
  - GASTROINTESTINAL HAEMORRHAGE [None]
  - SKIN HAEMORRHAGE [None]
  - PLATELET COUNT DECREASED [None]
